FAERS Safety Report 21009544 (Version 3)
Quarter: 2023Q2

REPORT INFORMATION
  Report Type: Spontaneous
  Country: US (occurrence: US)
  Receive Date: 20220627
  Receipt Date: 20230527
  Transmission Date: 20230722
  Serious: Yes (Hospitalization)
  Sender: FDA-Public Use
  Company Number: US-ARGENX-2022-ARGX-US000535

PATIENT
  Age: 68 Year
  Sex: Male
  Weight: 185 kg

DRUGS (4)
  1. VYVGART [Suspect]
     Active Substance: EFGARTIGIMOD ALFA-FCAB
     Indication: Myasthenia gravis
     Dosage: 1200 MG
     Route: 042
     Dates: start: 20220317
  2. VYVGART [Suspect]
     Active Substance: EFGARTIGIMOD ALFA-FCAB
     Dosage: 1200 MG
     Route: 042
     Dates: start: 20220324
  3. VYVGART [Suspect]
     Active Substance: EFGARTIGIMOD ALFA-FCAB
     Dosage: 1200 MG
     Route: 042
     Dates: start: 202211
  4. MESTINON [Concomitant]
     Active Substance: PYRIDOSTIGMINE BROMIDE
     Indication: Myasthenia gravis
     Dosage: 30 MG

REACTIONS (7)
  - COVID-19 [Recovered/Resolved]
  - Influenza [Unknown]
  - Malaise [Unknown]
  - Pyrexia [Unknown]
  - Chills [Unknown]
  - White blood cell count increased [Unknown]
  - Adverse drug reaction [Unknown]

NARRATIVE: CASE EVENT DATE: 20220330
